FAERS Safety Report 10449967 (Version 2)
Quarter: 2014Q4

REPORT INFORMATION
  Report Type: Spontaneous
  Country: US (occurrence: US)
  Receive Date: 20140912
  Receipt Date: 20141211
  Transmission Date: 20150528
  Serious: No
  Sender: FDA-Public Use
  Company Number: US-INCYTE CORPORATION-2014IN002325

PATIENT
  Sex: Female
  Weight: 72.56 kg

DRUGS (4)
  1. BENICAR [Concomitant]
     Active Substance: OLMESARTAN MEDOXOMIL
  2. TRETINOIN. [Concomitant]
     Active Substance: TRETINOIN
  3. JAKAFI [Suspect]
     Active Substance: RUXOLITINIB
     Indication: MYELOFIBROSIS
     Dosage: 10 MG, BID
     Route: 048
     Dates: start: 20131130
  4. CONTOUR [Concomitant]

REACTIONS (7)
  - Diarrhoea [Unknown]
  - Chest discomfort [Unknown]
  - Abdominal distension [Unknown]
  - Abdominal discomfort [Unknown]
  - Abasia [Unknown]
  - Flatulence [Unknown]
  - Swelling [Unknown]
